FAERS Safety Report 6290850-1 (Version None)
Quarter: 2009Q3

REPORT INFORMATION
  Report Type: 
  Country: None (occurrence: None)
  Receive Date: 20090729
  Receipt Date: 20090729
  Transmission Date: 20100115
  Serious: Yes (Other)
  Sender: FDA-Public Use
  Company Number: None

PATIENT
  Sex: Male
  Weight: 120.5 kg

DRUGS (2)
  1. ONDANSETRON [Suspect]
     Indication: GASTROOESOPHAGEAL REFLUX DISEASE
     Dosage: ONDANSETRON 8MG, BID, BY MOUTH; IMPRINT ON THE PILL IS GG ON SIDE AND 928 ON THE OTHER SIDE OF PILL
     Route: 048
     Dates: end: 20090625
  2. ONDANSETRON [Suspect]
     Indication: IRRITABLE BOWEL SYNDROME
     Dosage: ONDANSETRON 8MG, BID, BY MOUTH; IMPRINT ON THE PILL IS GG ON SIDE AND 928 ON THE OTHER SIDE OF PILL
     Route: 048
     Dates: end: 20090625

REACTIONS (2)
  - DRUG INEFFECTIVE [None]
  - PRODUCT FORMULATION ISSUE [None]
